FAERS Safety Report 8593246-2 (Version None)
Quarter: 2012Q3

REPORT INFORMATION
  Report Type: 
  Country: None (occurrence: None)
  Receive Date: 20120814
  Receipt Date: 20120802
  Transmission Date: 20120928
  Serious: No
  Sender: FDA-Public Use
  Company Number: US-ASTRAZENECA-2012SE54799

PATIENT
  Age: 57 Year
  Sex: Female
  Weight: 72.6 kg

DRUGS (5)
  1. SEROQUEL XR [Suspect]
     Route: 048
  2. CYMBALTA [Concomitant]
  3. SEROQUEL XR [Suspect]
     Indication: ANXIETY
     Route: 048
  4. SEROQUEL XR [Suspect]
     Route: 048
  5. SEROQUEL XR [Suspect]
     Indication: AFFECTIVE DISORDER
     Route: 048

REACTIONS (3)
  - DRUG DOSE OMISSION [None]
  - DEPRESSION [None]
  - OFF LABEL USE [None]
